FAERS Safety Report 12349669 (Version 1)
Quarter: 2016Q2

REPORT INFORMATION
  Report Type: Spontaneous
  Country: DK (occurrence: DK)
  Receive Date: 20160510
  Receipt Date: 20160510
  Transmission Date: 20160815
  Serious: Yes (Other)
  Sender: FDA-Public Use
  Company Number: DK-ACCORD-040412

PATIENT
  Age: 50 Year
  Sex: Male

DRUGS (4)
  1. MORFIN [Concomitant]
     Active Substance: MORPHINE SULFATE
     Indication: HEADACHE
     Dates: start: 201305
  2. METHOTREXATE [Suspect]
     Active Substance: METHOTREXATE
     Indication: CHEMOTHERAPY
     Route: 042
     Dates: start: 20130429
  3. ONCOVIN [Suspect]
     Active Substance: VINCRISTINE SULFATE
     Indication: CHEMOTHERAPY
     Route: 042
     Dates: start: 20130322
  4. CAFFEINE/CAFFEINE CITRATE [Concomitant]
     Indication: HEADACHE

REACTIONS (11)
  - Dysgeusia [Unknown]
  - Fine motor skill dysfunction [Unknown]
  - Fatigue [Unknown]
  - Paraesthesia [Unknown]
  - Throat irritation [Unknown]
  - Sensorimotor disorder [Unknown]
  - Neuralgia [Unknown]
  - Hyperaesthesia [Unknown]
  - Headache [Unknown]
  - Neuropathy peripheral [Unknown]
  - Dizziness postural [Unknown]

NARRATIVE: CASE EVENT DATE: 2013
